FAERS Safety Report 9976347 (Version 1)
Quarter: 2014Q1

REPORT INFORMATION
  Report Type: Report from Study
  Country: US (occurrence: US)
  Receive Date: 20140306
  Receipt Date: 20140306
  Transmission Date: 20141002
  Serious: No
  Sender: FDA-Public Use
  Company Number: US-ABBVIE-13P-163-1167217-00

PATIENT
  Sex: Female

DRUGS (3)
  1. HUMIRA [Suspect]
     Indication: CROHN^S DISEASE
     Dates: start: 20131007, end: 20131007
  2. HUMIRA [Suspect]
     Dates: start: 20131021, end: 20131021
  3. HUMIRA [Suspect]
     Dates: start: 20131104

REACTIONS (2)
  - Sinus operation [Not Recovered/Not Resolved]
  - Cough [Not Recovered/Not Resolved]
